FAERS Safety Report 4737950-2 (Version None)
Quarter: 2005Q3

REPORT INFORMATION
  Report Type: 
  Country: None (occurrence: None)
  Receive Date: 20050805
  Receipt Date: 20050727
  Transmission Date: 20060218
  Serious: Yes (Other)
  Sender: FDA-Public Use
  Company Number: B0387479A

PATIENT
  Age: 37 Year
  Sex: Female

DRUGS (2)
  1. LAMICTAL [Suspect]
     Indication: EPILEPSY
     Dosage: SEE DOSAGE TEXT
  2. CLONAZEPAM [Suspect]
     Dosage: .5 MG/THREE TIMES PER DAY/INTRA

REACTIONS (4)
  - CAESAREAN SECTION [None]
  - COMPLICATIONS OF MATERNAL EXPOSURE TO THERAPEUTIC DRUGS [None]
  - GRAND MAL CONVULSION [None]
  - PRE-ECLAMPSIA [None]
